FAERS Safety Report 11152949 (Version 2)
Quarter: 2015Q2

REPORT INFORMATION
  Report Type: Spontaneous
  Country: US (occurrence: US)
  Receive Date: 20150601
  Receipt Date: 20150618
  Transmission Date: 20150821
  Serious: Yes (Other)
  Sender: FDA-Public Use
  Company Number: US-BAYER-2015-259245

PATIENT
  Age: 72 Year
  Sex: Female
  Weight: 74.3 kg

DRUGS (9)
  1. LETROZOLE. [Concomitant]
     Active Substance: LETROZOLE
     Indication: BREAST CANCER METASTATIC
     Dosage: UNK UNK, UNK
     Dates: start: 20140304
  2. FISH OIL [Concomitant]
     Active Substance: FISH OIL
     Dosage: UNK
     Dates: end: 20150513
  3. BAYER LOW DOSE [Suspect]
     Active Substance: ASPIRIN
     Dosage: UNK
     Dates: start: 20150304, end: 20150401
  4. PALBOCICLIB [Concomitant]
     Active Substance: PALBOCICLIB
     Indication: BREAST CANCER METASTATIC
     Dosage: 125 MG, 21 DAYS ON, 7 DAYS OFF
     Dates: start: 20140304, end: 20150401
  5. PALBOCICLIB [Concomitant]
     Active Substance: PALBOCICLIB
     Indication: BREAST CANCER METASTATIC
     Dosage: 125 MG, 21 DAYS ON, 7 DAYS OFF
     Dates: start: 20150415, end: 20150512
  6. PALBOCICLIB [Concomitant]
     Active Substance: PALBOCICLIB
     Indication: BREAST CANCER METASTATIC
     Dosage: 100 MG, 21 DAYS ON, 7 DAYS OFF
     Dates: start: 20150513
  7. CYTOXAN [Concomitant]
     Active Substance: CYCLOPHOSPHAMIDE
     Indication: CHEMOTHERAPY
     Dosage: 6 CYCLES
     Dates: start: 10150210
  8. TAXOTERE [Concomitant]
     Active Substance: DOCETAXEL
     Indication: CHEMOTHERAPY
     Dosage: 6 CYCLES
     Dates: start: 20150210
  9. BAYER LOW DOSE [Suspect]
     Active Substance: ASPIRIN
     Dosage: UNK

REACTIONS (6)
  - Metastases to liver [None]
  - Alopecia [None]
  - Pleural effusion [None]
  - Lacrimation increased [None]
  - Thrombocytopenia [Unknown]
  - Neutropenia [Recovering/Resolving]

NARRATIVE: CASE EVENT DATE: 20140325
